FAERS Safety Report 7830042-5 (Version None)
Quarter: 2011Q4

REPORT INFORMATION
  Report Type: 
  Country: None (occurrence: None)
  Receive Date: 20111018
  Receipt Date: 20110930
  Transmission Date: 20120403
  Serious: Yes (Other)
  Sender: FDA-Public Use
  Company Number: 2011S1000325

PATIENT

DRUGS (2)
  1. INOMAX [Suspect]
     Indication: PRODUCT USED FOR UNKNOWN INDICATION
     Dosage: 20 PPM, CONT, INH
     Route: 055
     Dates: start: 20110101
  2. INOMAX [Suspect]

REACTIONS (2)
  - DEVICE FAILURE [None]
  - OXYGEN SATURATION DECREASED [None]
